FAERS Safety Report 13609791 (Version 1)
Quarter: 2017Q2

REPORT INFORMATION
  Report Type: Spontaneous
  Country: US (occurrence: US)
  Receive Date: 20170602
  Receipt Date: 20170602
  Transmission Date: 20170830
  Serious: Yes (Hospitalization, Other)
  Sender: FDA-Public Use
  Company Number: US-PFIZER INC-3020553

PATIENT
  Age: 68 Year
  Sex: Male
  Weight: 90.7 kg

DRUGS (11)
  1. CYTARABINE. [Suspect]
     Active Substance: CYTARABINE
     Dosage: 100 MG/M2, FREQ: CYCLICAL
     Route: 042
     Dates: start: 20140726, end: 20140802
  2. CYTARABINE. [Suspect]
     Active Substance: CYTARABINE
     Dosage: 1000 MG/M2, FREQ: 1 HOUR; INTERVAL: 12
     Dates: start: 20141017
  3. DAUNORUBICIN [Suspect]
     Active Substance: DAUNORUBICIN
     Indication: ACUTE MYELOID LEUKAEMIA
     Dosage: 60 MG/M2, FREQ: CYCLICAL
     Route: 040
     Dates: start: 20140820, end: 20140822
  4. CARVEDILOL. [Concomitant]
     Active Substance: CARVEDILOL
     Indication: ATRIAL FIBRILLATION
     Dosage: 25 MG, FREQ: 1 DAY; INTERVAL: 1
     Route: 048
  5. ALLOPURINOL. [Concomitant]
     Active Substance: ALLOPURINOL
     Indication: TUMOUR LYSIS SYNDROME
     Dosage: 100 MG, FREQ: AS NECESSARY
     Route: 048
  6. CYTARABINE. [Suspect]
     Active Substance: CYTARABINE
     Dosage: 1000 MG/M2, FREQ: 1 HOUR; INTERVAL: 12
     Dates: start: 20141019
  7. DAUNORUBICIN [Suspect]
     Active Substance: DAUNORUBICIN
     Dosage: 60 MG/M2, FREQ: CYCLICAL
     Route: 040
     Dates: start: 20140726, end: 20140728
  8. CYTARABINE. [Suspect]
     Active Substance: CYTARABINE
     Indication: ACUTE MYELOID LEUKAEMIA
     Dosage: 1000 MG/M2, FREQ: FREQ: 1 HOUR; INTERVAL: 12
     Dates: start: 20141015
  9. LEVETIRACETAM. [Concomitant]
     Active Substance: LEVETIRACETAM
     Indication: SEIZURE
     Dosage: 500 MG,FREQ: 2 DAY; INTERVAL: 1
     Route: 048
  10. CYTARABINE. [Suspect]
     Active Substance: CYTARABINE
     Dosage: 100 MG/M2, FREQ: CYCLICAL
     Route: 042
     Dates: start: 20140820, end: 20140827
  11. INVESTIGATIONAL DRUG [Suspect]
     Active Substance: INVESTIGATIONAL PRODUCT
     Indication: ACUTE MYELOID LEUKAEMIA
     Dosage: 100 MG, FREQ: 1 DAY; INTERVAL: 1
     Route: 048
     Dates: start: 20140723

REACTIONS (2)
  - Neutropenia [Recovered/Resolved]
  - Neutropenia [Recovered/Resolved with Sequelae]

NARRATIVE: CASE EVENT DATE: 20141026
